FAERS Safety Report 12179524 (Version 1)
Quarter: 2016Q1

REPORT INFORMATION
  Report Type: Spontaneous
  Country: US (occurrence: US)
  Receive Date: 20160315
  Receipt Date: 20160315
  Transmission Date: 20160526
  Serious: Yes (Other)
  Sender: FDA-Public Use
  Company Number: US-RETROPHIN, INC.-2016RTN00004

PATIENT
  Age: 3 Month
  Sex: Female

DRUGS (1)
  1. CHOLBAM [Suspect]
     Active Substance: CHOLIC ACID
     Indication: INBORN ERROR OF METABOLISM
     Dosage: UNK
     Dates: start: 201602

REACTIONS (1)
  - Seizure like phenomena [Unknown]

NARRATIVE: CASE EVENT DATE: 201602
